FAERS Safety Report 10109475 (Version 3)
Quarter: 2014Q2

REPORT INFORMATION
  Report Type: Report from Study
  Country: BR (occurrence: BR)
  Receive Date: 20140425
  Receipt Date: 20140508
  Transmission Date: 20141212
  Serious: Yes (Death, Hospitalization, Other)
  Sender: FDA-Public Use
  Company Number: BR-ROCHE-1383748

PATIENT
  Age: 69 Year
  Sex: Female
  Weight: 61 kg

DRUGS (1)
  1. MABTHERA [Suspect]
     Indication: RHEUMATOID ARTHRITIS
     Route: 065
     Dates: start: 20131121

REACTIONS (6)
  - Post procedural infection [Fatal]
  - Cardiac arrest [Fatal]
  - Spinal cord compression [Recovered/Resolved]
  - Spinal fracture [Recovered/Resolved]
  - Pain [Recovered/Resolved]
  - Asthenia [Recovered/Resolved]
